FAERS Safety Report 7399554-5 (Version None)
Quarter: 2011Q2

REPORT INFORMATION
  Report Type: 
  Country: None (occurrence: None)
  Receive Date: 20110407
  Receipt Date: 20101110
  Transmission Date: 20111010
  Serious: Yes (Hospitalization, Other)
  Sender: FDA-Public Use
  Company Number: US-BAYER-201035611NA

PATIENT
  Sex: Female
  Weight: 86.168 kg

DRUGS (9)
  1. PROTONIX [Concomitant]
     Indication: ABDOMINAL PAIN UPPER
     Dosage: UNK
  2. OCELLA [Suspect]
     Indication: CONTRACEPTION
     Dosage: UNK
     Dates: start: 20060101, end: 20100101
  3. ADVIL LIQUI-GELS [Concomitant]
     Dosage: UNK UNK, PRN
  4. SULFAMETHOXAZOLE AND TRIMETHOPRIM DOUBLE STRENGTH [Concomitant]
     Indication: STAPHYLOCOCCAL INFECTION
     Dosage: UNK UNK, BID
     Route: 048
     Dates: start: 20060131, end: 20060209
  5. PRILOSEC [Concomitant]
     Indication: ABDOMINAL PAIN UPPER
     Dosage: UNK
     Dates: start: 20060701
  6. YASMIN [Suspect]
     Indication: CONTRACEPTION
     Dosage: UNK
     Dates: start: 20060101, end: 20100101
  7. YAZ [Suspect]
     Indication: CONTRACEPTION
     Dosage: UNK
     Dates: start: 20060101, end: 20100101
  8. ZANTAC [Concomitant]
     Indication: ABDOMINAL PAIN UPPER
     Dosage: UNK
     Dates: start: 20060701
  9. NEXIUM [Concomitant]
     Indication: ABDOMINAL PAIN UPPER
     Dosage: UNK
     Dates: start: 20061001

REACTIONS (4)
  - GALLBLADDER INJURY [None]
  - GALLBLADDER CHOLESTEROLOSIS [None]
  - CHOLECYSTITIS CHRONIC [None]
  - CHOLELITHIASIS [None]
